FAERS Safety Report 4407847-6 (Version None)
Quarter: 2004Q3

REPORT INFORMATION
  Report Type: 
  Country: None (occurrence: None)
  Receive Date: 20040726
  Receipt Date: 20040714
  Transmission Date: 20050211
  Serious: Yes (Hospitalization)
  Sender: FDA-Public Use
  Company Number: PT-GLAXOSMITHKLINE-B0339567A

PATIENT
  Age: 20 Year
  Sex: Female

DRUGS (2)
  1. AMOXICILLIN [Suspect]
     Dosage: 1500MG PER DAY
     Route: 048
     Dates: start: 20020101
  2. VALPROIC ACID [Concomitant]
     Indication: EPILEPSY
     Route: 048

REACTIONS (3)
  - PRURITUS [None]
  - RASH MACULO-PAPULAR [None]
  - URTICARIA GENERALISED [None]
